FAERS Safety Report 8487838-9 (Version None)
Quarter: 2012Q3

REPORT INFORMATION
  Report Type: 
  Country: None (occurrence: None)
  Receive Date: 20120705
  Receipt Date: 20120627
  Transmission Date: 20120928
  Serious: Yes (Other)
  Sender: FDA-Public Use
  Company Number: BR-PFIZER INC-2010153107

PATIENT
  Age: 63 Year
  Sex: Female
  Weight: 49.5 kg

DRUGS (12)
  1. DONAREN [Concomitant]
     Indication: ANTIDEPRESSANT THERAPY
     Dosage: 100 MG (TWO TABLETS OF 50 MG), 1X/DAY
     Dates: start: 20070101
  2. OSTEOFORM [Concomitant]
     Indication: OSTEOPENIA
     Dosage: 70 MG, WEEKLY
  3. CLONAZEPAM [Concomitant]
     Indication: INSOMNIA
     Dosage: 0.5 MG, 1X/DAY
     Route: 048
  4. VARENICLINE TARTRATE [Suspect]
     Dosage: 0.5 MG, 2X/DAY (EVERY 12 HOURS)
     Route: 048
  5. LEVOTHYROXINE SODIUM [Concomitant]
     Indication: THYROID NODULE REMOVAL
     Dosage: 75 UG, 1X/DAY
     Route: 048
     Dates: start: 20020101
  6. DALMADORM [Concomitant]
     Indication: INSOMNIA
     Dosage: 30 MG, 1X/DAY
  7. VARENICLINE TARTRATE [Suspect]
     Dosage: 1 TABLET, TWICE DAILY
     Route: 048
  8. MICARDIS [Concomitant]
     Indication: HYPERTENSION
     Dosage: 80 MG, 1X/DAY
     Route: 048
     Dates: start: 20100201
  9. CALCIUM COMPOUNDS [Concomitant]
     Indication: BONE DISORDER
     Dosage: 20 MG, 1X/DAY
  10. DONAREN [Concomitant]
     Dosage: 50 MG, 1X/DAY
  11. VARENICLINE TARTRATE [Suspect]
     Indication: TOBACCO USER
     Dosage: UNK
     Route: 048
     Dates: start: 20101113
  12. CORUS [Concomitant]
     Indication: HYPERTENSION
     Dosage: 50 MG, 1X/DAY

REACTIONS (15)
  - IRRITABILITY [None]
  - INCREASED APPETITE [None]
  - ABNORMAL DREAMS [None]
  - PAIN IN EXTREMITY [None]
  - LABYRINTHITIS [None]
  - NAUSEA [None]
  - NIGHTMARE [None]
  - FATIGUE [None]
  - ANXIETY [None]
  - SOMNOLENCE [None]
  - BLOOD PRESSURE INCREASED [None]
  - BEDRIDDEN [None]
  - ASTHENIA [None]
  - SENSATION OF HEAVINESS [None]
  - FEELING ABNORMAL [None]
